FAERS Safety Report 9771824 (Version 1)
Quarter: 2013Q4

REPORT INFORMATION
  Report Type: Spontaneous
  Country: NL (occurrence: NL)
  Receive Date: 20131219
  Receipt Date: 20131219
  Transmission Date: 20140711
  Serious: Yes (Other)
  Sender: FDA-Public Use
  Company Number: PHHY2013NL143903

PATIENT
  Age: 66 Year
  Sex: Female

DRUGS (3)
  1. OCTREOTIDE [Suspect]
     Indication: PARAGANGLION NEOPLASM
  2. DOXAZOSIN [Concomitant]
     Indication: HYPERTENSION
  3. AMLODIPINE [Concomitant]
     Indication: HYPERTENSION

REACTIONS (6)
  - Blood pressure increased [Unknown]
  - Disease progression [Unknown]
  - Cholelithiasis [Unknown]
  - Tinnitus [Unknown]
  - Dizziness [Unknown]
  - Drug ineffective [Unknown]
